FAERS Safety Report 6640742-0 (Version None)
Quarter: 2010Q1

REPORT INFORMATION
  Report Type: 
  Country: None (occurrence: None)
  Receive Date: 20100318
  Receipt Date: 20100315
  Transmission Date: 20100710
  Serious: Yes (Hospitalization)
  Sender: FDA-Public Use
  Company Number: A0850213A

PATIENT
  Age: 55 Year
  Sex: Female

DRUGS (2)
  1. NICODERM CQ [Suspect]
     Indication: SMOKING CESSATION THERAPY
     Route: 062
     Dates: start: 20100201, end: 20100309
  2. SINGULAIR [Concomitant]
     Route: 048

REACTIONS (29)
  - ABNORMAL BEHAVIOUR [None]
  - ABNORMAL DREAMS [None]
  - ANXIETY [None]
  - BLOOD CALCIUM INCREASED [None]
  - BLOOD CHOLESTEROL INCREASED [None]
  - BLOOD GLUCOSE INCREASED [None]
  - BLOOD PHOSPHORUS INCREASED [None]
  - BLOOD PRESSURE INCREASED [None]
  - CONSTIPATION [None]
  - CONVERSION DISORDER [None]
  - CRYING [None]
  - DEREALISATION [None]
  - EMOTIONAL DISORDER [None]
  - EMOTIONAL DISTRESS [None]
  - FATIGUE [None]
  - FEELING ABNORMAL [None]
  - FRUSTRATION [None]
  - ILLUSION [None]
  - INSOMNIA [None]
  - LOW DENSITY LIPOPROTEIN INCREASED [None]
  - MALAISE [None]
  - MENTAL DISORDER [None]
  - MENTAL IMPAIRMENT [None]
  - MENTAL STATUS CHANGES [None]
  - MOOD SWINGS [None]
  - PALPITATIONS [None]
  - SLEEP DISORDER [None]
  - SUICIDAL IDEATION [None]
  - TENSION [None]
